FAERS Safety Report 7398134-5 (Version None)
Quarter: 2011Q2

REPORT INFORMATION
  Report Type: 
  Country: None (occurrence: None)
  Receive Date: 20110406
  Receipt Date: 20110401
  Transmission Date: 20111010
  Serious: Yes (Other)
  Sender: FDA-Public Use
  Company Number: GB-ABBOTT-11P-167-0716127-00

PATIENT
  Sex: Female

DRUGS (1)
  1. HUMIRA [Suspect]
     Indication: ANKYLOSING SPONDYLITIS
     Route: 058
     Dates: start: 20110316

REACTIONS (6)
  - HEADACHE [None]
  - CHEST PAIN [None]
  - HEART RATE INCREASED [None]
  - NAUSEA [None]
  - PARAESTHESIA [None]
  - HYPERHIDROSIS [None]
